FAERS Safety Report 9054964 (Version 6)
Quarter: 2014Q3

REPORT INFORMATION
  Report Type: Spontaneous
  Country: US (occurrence: US)
  Receive Date: 20130208
  Receipt Date: 20140813
  Transmission Date: 20150326
  Serious: Yes (Life-Threatening, Hospitalization, Other)
  Sender: FDA-Public Use
  Company Number: PHEH2012US022522

PATIENT
  Age: 76 Year
  Sex: Female

DRUGS (27)
  1. NEURONTIN [Concomitant]
     Active Substance: GABAPENTIN
     Dosage: 2 DF, TID
     Route: 048
  2. WARFARIN SODIUM. [Concomitant]
     Active Substance: WARFARIN SODIUM
     Dosage: 2.5 MG, 1 TO 2 TABS BY MOUTH WHEN REQUIRED.
     Route: 048
  3. LORAZEPAM. [Concomitant]
     Active Substance: LORAZEPAM
     Dosage: UKN
  4. COUMADINE [Concomitant]
     Active Substance: WARFARIN SODIUM
     Dosage: UNK
  5. AMIODARONE [Concomitant]
     Active Substance: AMIODARONE
     Dosage: UNK
  6. TUSSIONEX PENNKINETIC [Concomitant]
     Active Substance: CHLORPHENIRAMINE\HYDROCODONE
     Indication: COUGH
     Dosage: 1 TSP EVERY 12 HOURS
  7. HYDROCODONE [Concomitant]
     Active Substance: HYDROCODONE
     Dosage: UNK
  8. RECLAST [Suspect]
     Active Substance: ZOLEDRONIC ACID
     Indication: OSTEOPOROSIS
     Dosage: 5 MG, ONCE YEARLY
     Route: 042
     Dates: start: 20121002
  9. AMIODARONE HYDROCHLORIDE. [Concomitant]
     Active Substance: AMIODARONE HYDROCHLORIDE
     Dosage: 200 MG, QD
     Route: 048
  10. FLUZONE//INFLUENZA VACCINE [Concomitant]
     Dosage: 0.5 ML, LEFT DELTOID
     Route: 030
     Dates: start: 20121002
  11. PNEUMOVAX 23 [Concomitant]
     Active Substance: PNEUMOCOCCAL VACCINE, POLYVALENT 23
     Dosage: UKN
  12. LOMOTIL [Concomitant]
     Active Substance: ATROPINE SULFATE\DIPHENOXYLATE HYDROCHLORIDE
     Dosage: 2 DF, QID
     Route: 048
  13. VITAMIN D [Concomitant]
     Active Substance: CHOLECALCIFEROL
     Dosage: 50000 UKN, 1 CAPSULE TWICE A WEEK
     Route: 048
  14. FENTANYL. [Concomitant]
     Active Substance: FENTANYL
     Dosage: 75 MCG/HR PT72 1 PATCH EVERY THREE DAYS
     Route: 061
  15. NORVASC [Concomitant]
     Active Substance: AMLODIPINE BESYLATE
     Dosage: 10 MG, QD
  16. MAXZIDE [Concomitant]
     Active Substance: HYDROCHLOROTHIAZIDE\TRIAMTERENE
     Dosage: UNK
  17. BYSTOLIC [Concomitant]
     Active Substance: NEBIVOLOL HYDROCHLORIDE
     Dosage: UNK
  18. ZOSTAVAX [Concomitant]
     Active Substance: VARICELLA-ZOSTER VIRUS STRAIN OKA/MERCK LIVE ANTIGEN
     Dosage: UKN
  19. TRIAMTERENE AND HYDROCHLOROTHIAZID [Concomitant]
     Active Substance: HYDROCHLOROTHIAZIDE\TRIAMTERENE
     Dosage: 1 DF, QD AS NEEDED FOR TRAVEL
  20. NASONEX [Concomitant]
     Active Substance: MOMETASONE FUROATE
     Dosage: 2 SPRAY EACH NOSTRIL
     Route: 045
  21. NORCO [Concomitant]
     Active Substance: ACETAMINOPHEN\HYDROCODONE BITARTRATE
     Dosage: 1 DF, QID
     Route: 048
  22. CRESTOR [Concomitant]
     Active Substance: ROSUVASTATIN CALCIUM
     Dosage: 10 MG, QD
     Route: 048
  23. ALLOPURINOL. [Concomitant]
     Active Substance: ALLOPURINOL
     Dosage: 100 MG, QD
     Route: 048
  24. FLURAZEPAM HCL [Concomitant]
     Active Substance: FLURAZEPAM HYDROCHLORIDE
     Dosage: 30 MG, 1 TAB ORALLY AT BED TIME
     Route: 048
  25. ASPIRIN. [Concomitant]
     Active Substance: ASPIRIN
     Dosage: 325 MG, QD
     Route: 048
  26. DURAGESIC//FENTANYL [Concomitant]
     Dosage: UNK
  27. BYSTOLIC [Concomitant]
     Active Substance: NEBIVOLOL HYDROCHLORIDE
     Dosage: 5 MG AT BED TIME

REACTIONS (42)
  - Hypoxia [Recovering/Resolving]
  - Erythema [Unknown]
  - Pleuritic pain [Unknown]
  - Asthenia [Unknown]
  - Heart valve incompetence [Unknown]
  - Haemorrhage [Unknown]
  - Atrial fibrillation [Unknown]
  - Respiratory failure [Recovering/Resolving]
  - Renal tubular necrosis [Unknown]
  - Confusional state [Unknown]
  - Cardiac failure congestive [Unknown]
  - Contusion [Unknown]
  - Thoracic vertebral fracture [Unknown]
  - Nephrolithiasis [Unknown]
  - Cough [Unknown]
  - Hypertension [Unknown]
  - Renal failure acute [Recovering/Resolving]
  - Glomerular filtration rate decreased [Unknown]
  - Blood urine present [Unknown]
  - Chest pain [Unknown]
  - Proteinuria [Unknown]
  - Pain [Unknown]
  - Dysarthria [Recovering/Resolving]
  - Swelling [Unknown]
  - Deep vein thrombosis [Unknown]
  - Fall [Unknown]
  - Pulmonary hypertension [Unknown]
  - Pulmonary oedema [Unknown]
  - Hypervitaminosis D [Unknown]
  - Pleural effusion [Unknown]
  - Malaise [Unknown]
  - Dyspnoea [Recovering/Resolving]
  - Bacterial test positive [Unknown]
  - Phlebitis [Unknown]
  - Hypocalcaemia [Unknown]
  - Arthralgia [Unknown]
  - Lethargy [Unknown]
  - Cellulitis [Unknown]
  - Face injury [Unknown]
  - Fracture [Unknown]
  - Urinary tract infection [Unknown]
  - Constipation [Unknown]

NARRATIVE: CASE EVENT DATE: 20121029
